FAERS Safety Report 21811790 (Version 1)
Quarter: 2023Q1

REPORT INFORMATION
  Report Type: Spontaneous
  Country: US (occurrence: None)
  Receive Date: 20230102
  Receipt Date: 20230102
  Transmission Date: 20230418
  Serious: Yes (Death)
  Sender: FDA-Public Use
  Company Number: None

PATIENT
  Age: 48 Year
  Sex: Male

DRUGS (1)
  1. SPRYCEL [Suspect]
     Active Substance: DASATINIB
     Dosage: 70MG DAILY ORAL
     Route: 048
     Dates: start: 202209, end: 20221210

REACTIONS (1)
  - Death [None]

NARRATIVE: CASE EVENT DATE: 20221210
